FAERS Safety Report 11231274 (Version 1)
Quarter: 2015Q3

REPORT INFORMATION
  Report Type: Spontaneous
  Country: US (occurrence: US)
  Receive Date: 20150701
  Receipt Date: 20150701
  Transmission Date: 20151125
  Serious: Yes (Other)
  Sender: FDA-Public Use
  Company Number: US-DRREDDYS-USA/USA/15/0049019

PATIENT
  Age: 24 Year
  Sex: Female
  Weight: 58.96 kg

DRUGS (1)
  1. ZENATANE [Suspect]
     Active Substance: ISOTRETINOIN
     Indication: ACNE CYSTIC
     Dosage: 3 CAPSULES ORALLY EVERY OTHER DAY, AND 4 CAPSULES ORALLY DAILY IN BETWEEN THOSE DAYS
     Route: 048
     Dates: start: 201409, end: 201506

REACTIONS (2)
  - Affect lability [Recovering/Resolving]
  - Crying [Recovering/Resolving]
